FAERS Safety Report 4604519-X (Version None)
Quarter: 2005Q2

REPORT INFORMATION
  Report Type: 
  Country: None (occurrence: None)
  Receive Date: 20050223
  Receipt Date: 20041214
  Transmission Date: 20051028
  Serious: No
  Sender: FDA-Public Use
  Company Number: PHEH2004US13314

PATIENT
  Age: 62 Year
  Sex: Female

DRUGS (9)
  1. ZELNORM [Suspect]
     Indication: IRRITABLE BOWEL SYNDROME
     Dosage: 6 MG, BID, ORAL
     Route: 048
     Dates: start: 20041208
  2. DURAGESIC [Concomitant]
  3. KLONOPIN [Concomitant]
  4. COREG [Concomitant]
  5. BENICAR [Concomitant]
  6. EFFEXOR [Concomitant]
  7. LEXAPRO [Concomitant]
  8. PREVACID [Concomitant]
  9. NEURONTIN [Concomitant]

REACTIONS (2)
  - ABNORMAL FAECES [None]
  - CONSTIPATION [None]
